FAERS Safety Report 15188046 (Version 1)
Quarter: 2018Q3

REPORT INFORMATION
  Report Type: Spontaneous
  Country: US (occurrence: US)
  Receive Date: 20180724
  Receipt Date: 20180724
  Transmission Date: 20181010
  Serious: No
  Sender: FDA-Public Use
  Company Number: US-009507513-1611USA013771

PATIENT
  Age: 25 Year
  Sex: Female

DRUGS (4)
  1. ATAZANAVIR. [Suspect]
     Active Substance: ATAZANAVIR SULFATE
     Dosage: TOTAL DAILY DOSE: 300 (UNITS UNKNOWN), COURSE# 1
     Route: 048
     Dates: start: 201601, end: 2016
  2. RITONAVIR. [Suspect]
     Active Substance: RITONAVIR
     Dosage: TOTAL DAILY DOSE: 100 (UNITS UNKNOWN), COURSE# 1
     Route: 048
     Dates: start: 201601, end: 2016
  3. ISENTRESS [Suspect]
     Active Substance: RALTEGRAVIR POTASSIUM
     Dosage: TOTAL DAILY DOSE: 800 (UNITS UNKNOWN), COURSE# 1
     Route: 048
     Dates: start: 201601
  4. EMTRICITABINE (+) TENOFOVIR DISOPROXIL FUMARATE [Suspect]
     Active Substance: EMTRICITABINE\TENOFOVIR DISOPROXIL
     Dosage: TOTAL DAILY DOSE 1 (UNITS UNKNOWN), COURSE# 1
     Route: 048
     Dates: start: 201601

REACTIONS (1)
  - Maternal exposure during pregnancy [Recovered/Resolved]
